FAERS Safety Report 4717862-0 (Version None)
Quarter: 2005Q3

REPORT INFORMATION
  Report Type: 
  Country: None (occurrence: None)
  Receive Date: 20050718
  Receipt Date: 20050127
  Transmission Date: 20060218
  Serious: No
  Sender: FDA-Public Use
  Company Number: 2005000098

PATIENT
  Age: 74 Year
  Sex: Female

DRUGS (4)
  1. TARCEVA [Suspect]
     Indication: NON-SMALL CELL LUNG CANCER
     Dosage: 150 MG (QD), ORAL
     Route: 048
     Dates: start: 20041201
  2. ALPRAZOLAM [Concomitant]
  3. SERTRALINE HCL [Concomitant]
  4. VERAPAMIL [Concomitant]

REACTIONS (4)
  - DIARRHOEA [None]
  - DYSPNOEA [None]
  - MUCOSAL HAEMORRHAGE [None]
  - STOMATITIS [None]
